FAERS Safety Report 9816358 (Version 2)
Quarter: 2014Q1

REPORT INFORMATION
  Report Type: Spontaneous
  Country: LB (occurrence: LB)
  Receive Date: 20140114
  Receipt Date: 20140310
  Transmission Date: 20141002
  Serious: Yes (Hospitalization, Other)
  Sender: FDA-Public Use
  Company Number: LB-B.I. PHARMACEUTICALS,INC./RIDGEFIELD-2014-BI-01676AE

PATIENT
  Age: 64 Year
  Sex: Male

DRUGS (9)
  1. TRAJENTA [Suspect]
     Indication: TYPE 2 DIABETES MELLITUS
     Route: 048
     Dates: start: 201305, end: 20131020
  2. PLAVIX [Concomitant]
     Indication: CORONARY ARTERY DISEASE
     Dosage: 75 MG
     Route: 048
     Dates: start: 201304
  3. GLUCOPHAGE (METFORMIN) [Concomitant]
     Indication: TYPE 2 DIABETES MELLITUS
     Route: 048
     Dates: start: 201305, end: 20131025
  4. TAKYPRON (OMEPRAZOLE) [Concomitant]
     Indication: GASTRITIS
     Dosage: 20 MG
     Route: 048
  5. ZEMIL (EZETIMIDE) [Concomitant]
     Indication: HYPERCHOLESTEROLAEMIA
     Dosage: 10 MG
     Route: 048
  6. MICARDIS (TELMISARTAN) [Concomitant]
     Indication: HYPERTENSION
     Dosage: 80 MG
     Route: 048
  7. LASIX (FUROSEMIDE) [Concomitant]
     Indication: HYPERTENSION
     Route: 048
  8. LIPANTHYL (FENOFIBRATE) [Concomitant]
     Indication: HYPERTRIGLYCERIDAEMIA
     Route: 048
  9. VASTAREL [Concomitant]
     Indication: CORONARY ARTERY DISEASE
     Dosage: TIME PERIOD: DAILY
     Route: 048

REACTIONS (1)
  - Pancreatitis [Unknown]
